FAERS Safety Report 11500823 (Version 1)
Quarter: 2015Q3

REPORT INFORMATION
  Report Type: Spontaneous
  Country: US (occurrence: None)
  Receive Date: 20150911
  Receipt Date: 20150911
  Transmission Date: 20151125
  Serious: Yes (Other)
  Sender: FDA-Public Use
  Company Number: None

PATIENT
  Age: 45 Year
  Sex: Female
  Weight: 58.97 kg

DRUGS (5)
  1. MULTIVITAMINS [Concomitant]
     Active Substance: VITAMINS
  2. AMLODIPINE [Suspect]
     Active Substance: AMLODIPINE BESYLATE
     Indication: HYPERTENSION
     Dosage: 1/2 OF 10MG 1X/DAY ONCE DAILY TAKEN BY MOUTH
     Route: 048
     Dates: start: 20150806, end: 20150831
  3. VITAFUSION VITD [Concomitant]
  4. HYDROCHLOROTHIAZIDE. [Concomitant]
     Active Substance: HYDROCHLOROTHIAZIDE
  5. CALCIUM [Concomitant]
     Active Substance: CALCIUM

REACTIONS (13)
  - Pruritus [None]
  - Paraesthesia oral [None]
  - Feeling hot [None]
  - Palpitations [None]
  - Erythema [None]
  - Headache [None]
  - Lip disorder [None]
  - Blister [None]
  - Chest discomfort [None]
  - Unevaluable event [None]
  - Blood pressure inadequately controlled [None]
  - Ear disorder [None]
  - Rash [None]

NARRATIVE: CASE EVENT DATE: 20150806
